FAERS Safety Report 6185897-X (Version None)
Quarter: 2009Q2

REPORT INFORMATION
  Report Type: 
  Country: None (occurrence: None)
  Receive Date: 20090511
  Receipt Date: 20090505
  Transmission Date: 20091009
  Serious: Yes (Other)
  Sender: FDA-Public Use
  Company Number: D0061325A

PATIENT
  Sex: Female
  Weight: 48 kg

DRUGS (1)
  1. LAMOTRIGINE (RATIOPHARM) [Suspect]
     Dosage: 800MG PER DAY
     Route: 048
     Dates: start: 20090417, end: 20090417

REACTIONS (3)
  - DIZZINESS [None]
  - INTENTIONAL OVERDOSE [None]
  - SUICIDE ATTEMPT [None]
